FAERS Safety Report 10523741 (Version 2)
Quarter: 2014Q4

REPORT INFORMATION
  Report Type: Spontaneous
  Country: JP (occurrence: JP)
  Receive Date: 20141017
  Receipt Date: 20141123
  Transmission Date: 20150528
  Serious: Yes (Life-Threatening)
  Sender: FDA-Public Use
  Company Number: JP-BRISTOL-MYERS SQUIBB COMPANY-21492830

PATIENT
  Age: 80 Year
  Sex: Male
  Weight: 55.6 kg

DRUGS (12)
  1. MAINTATE [Concomitant]
     Active Substance: BISOPROLOL FUMARATE
  2. AVAPRO [Concomitant]
     Active Substance: IRBESARTAN
  3. ASPENON [Suspect]
     Active Substance: APRINDINE HYDROCHLORIDE
     Indication: CEREBRAL INFARCTION
     Route: 048
     Dates: start: 20140625, end: 20140818
  4. UNASYN [Concomitant]
     Active Substance: AMPICILLIN SODIUM\SULBACTAM SODIUM
     Indication: HYPOXIA
  5. ASPENON [Suspect]
     Active Substance: APRINDINE HYDROCHLORIDE
     Indication: ATRIAL FIBRILLATION
     Route: 048
     Dates: start: 20140625, end: 20140818
  6. NEXIUM [Concomitant]
     Active Substance: ESOMEPRAZOLE MAGNESIUM
  7. BENZALIN [Concomitant]
     Active Substance: NITRAZEPAM
  8. HARNAL [Concomitant]
     Active Substance: TAMSULOSIN HYDROCHLORIDE
  9. UNASYN [Concomitant]
     Active Substance: AMPICILLIN SODIUM\SULBACTAM SODIUM
     Indication: PYREXIA
  10. MAGNESIUM OXIDE. [Concomitant]
     Active Substance: MAGNESIUM OXIDE
  11. PLETAAL [Concomitant]
     Active Substance: CILOSTAZOL
  12. ELIQUIS [Suspect]
     Active Substance: APIXABAN
     Indication: THROMBOSIS PROPHYLAXIS
     Dates: start: 20140625, end: 20140818

REACTIONS (2)
  - Pulmonary alveolar haemorrhage [Recovered/Resolved with Sequelae]
  - Pneumonia [Recovered/Resolved with Sequelae]

NARRATIVE: CASE EVENT DATE: 20140811
